FAERS Safety Report 8555904-5 (Version None)
Quarter: 2012Q3

REPORT INFORMATION
  Report Type: 
  Country: None (occurrence: None)
  Receive Date: 20120801
  Receipt Date: 20120723
  Transmission Date: 20120928
  Serious: No
  Sender: FDA-Public Use
  Company Number: US-BIOGENIDEC-2012BI026883

PATIENT
  Sex: Female

DRUGS (2)
  1. AVONEX [Suspect]
     Indication: MULTIPLE SCLEROSIS
     Route: 030
     Dates: start: 20000825, end: 20120716
  2. AVONEX [Suspect]
     Route: 030
     Dates: start: 20120716

REACTIONS (5)
  - INJECTION SITE PAIN [None]
  - PARAESTHESIA [None]
  - PSYCHOMOTOR HYPERACTIVITY [None]
  - DISTURBANCE IN SEXUAL AROUSAL [None]
  - MUSCLE SPASTICITY [None]
